FAERS Safety Report 8840511 (Version 2)
Quarter: 2012Q4

REPORT INFORMATION
  Report Type: 
  Country: US (occurrence: US)
  Receive Date: 20121015
  Receipt Date: 20121211
  Transmission Date: 20130627
  Serious: Yes (Other)
  Sender: FDA-Public Use
  Company Number: US-ROCHE-1127401

PATIENT
  Age: 9 Year
  Sex: Male
  Weight: 27.7 kg

DRUGS (4)
  1. NUTROPIN AQ [Suspect]
     Indication: FOCAL SEGMENTAL GLOMERULOSCLEROSIS
     Route: 058
     Dates: end: 20040504
  2. NUTROPIN AQ [Suspect]
     Indication: GROWTH RETARDATION
  3. NUTROPIN AQ [Suspect]
     Indication: RENAL FAILURE CHRONIC
  4. LOSARTAN [Concomitant]

REACTIONS (3)
  - Ocular vascular disorder [Unknown]
  - Cardiac murmur [Recovered/Resolved]
  - Anaemia [Unknown]
